FAERS Safety Report 8058240-9 (Version None)
Quarter: 2012Q1

REPORT INFORMATION
  Report Type: 
  Country: None (occurrence: None)
  Receive Date: 20120111
  Receipt Date: 20120106
  Transmission Date: 20120608
  Serious: Yes (Life-Threatening, Disabling)
  Sender: FDA-Public Use
  Company Number: 2011SP056988

PATIENT
  Age: 1 Year
  Sex: Male

DRUGS (2)
  1. FENTANYL [Concomitant]
  2. VECURONIUM BROMIDE [Suspect]
     Indication: SEDATIVE THERAPY
     Dosage: INDRP
     Route: 041

REACTIONS (4)
  - PERITONEAL DIALYSIS [None]
  - LIVER DISORDER [None]
  - RENAL IMPAIRMENT [None]
  - DRUG EFFECT PROLONGED [None]
